FAERS Safety Report 21964812 (Version 1)
Quarter: 2023Q1

REPORT INFORMATION
  Report Type: Report from Study
  Country: US (occurrence: US)
  Receive Date: 20230207
  Receipt Date: 20230207
  Transmission Date: 20230418
  Serious: Yes (Hospitalization, Other)
  Sender: FDA-Public Use
  Company Number: US-GILEAD-2023-0615629

PATIENT
  Age: 56 Year
  Sex: Male

DRUGS (1)
  1. SOFOSBUVIR\VELPATASVIR [Suspect]
     Active Substance: SOFOSBUVIR\VELPATASVIR
     Indication: Hepatitis C
     Dosage: (400/100MG) 1 DOSAGE FORM, QD
     Route: 048
     Dates: start: 20221115

REACTIONS (2)
  - Syncope [Unknown]
  - Skin laceration [Unknown]

NARRATIVE: CASE EVENT DATE: 20230204
